FAERS Safety Report 9345833 (Version 1)
Quarter: 2013Q2

REPORT INFORMATION
  Report Type: Report from Study
  Country: US (occurrence: US)
  Receive Date: 20130613
  Receipt Date: 20130613
  Transmission Date: 20140414
  Serious: Yes (Hospitalization)
  Sender: FDA-Public Use
  Company Number: US-ELI_LILLY_AND_COMPANY-US201210009499

PATIENT
  Age: 58 Year
  Sex: Female
  Weight: 86.7 kg

DRUGS (16)
  1. NECITUMUMAB (11F8) (LY3012211) [Suspect]
     Indication: OVARIAN CANCER METASTATIC
     Dosage: 800 MG, UNK
     Route: 042
     Dates: start: 20121016, end: 20121016
  2. NECITUMUMAB (11F8) (LY3012211) [Suspect]
     Dosage: 800 MG, UNK
     Route: 042
     Dates: start: 20121030
  3. GEMCITABINE HYDROCHLORIDE [Suspect]
     Indication: OVARIAN CANCER METASTATIC
     Dosage: 1250 MG/M2, UNK
     Route: 042
     Dates: start: 20121016, end: 20121016
  4. GEMCITABINE HYDROCHLORIDE [Suspect]
     Dosage: 1250 MG/M2, UNK
     Route: 042
     Dates: start: 20121030
  5. CISPLATIN [Suspect]
     Indication: OVARIAN CANCER METASTATIC
     Dosage: 75 MG/M2, UNK
     Route: 042
     Dates: start: 20121016, end: 20121016
  6. CISPLATIN [Suspect]
     Dosage: 75 MG/M2, UNK
     Route: 042
     Dates: start: 20121030
  7. ZOFRAN [Concomitant]
     Indication: NAUSEA
     Dosage: UNK
     Dates: start: 2011
  8. OXYGEN [Concomitant]
     Indication: SLEEP APNOEA SYNDROME
     Dosage: UNK
     Dates: start: 2010
  9. SINGULAIR [Concomitant]
     Indication: ASTHMA
     Dosage: UNK
     Dates: start: 2004
  10. VENTOLIN                                /SCH/ [Concomitant]
     Indication: ASTHMA
     Dosage: UNK
     Dates: start: 2004
  11. VITAMIN B6 [Concomitant]
     Dosage: UNK
     Dates: start: 2011
  12. COMPAZINE [Concomitant]
     Indication: NAUSEA
     Dosage: UNK
     Dates: start: 2012
  13. ALBUTEROL [Concomitant]
     Indication: ASTHMA
     Dosage: UNK
     Dates: start: 1978
  14. NORCO [Concomitant]
     Indication: PAIN
     Dosage: UNK
     Dates: start: 2012
  15. PROZAC [Concomitant]
     Indication: DEPRESSION
     Dosage: UNK
     Dates: start: 2008
  16. ROBAXIN [Concomitant]
     Indication: PAIN
     Dosage: UNK
     Dates: start: 20120905

REACTIONS (1)
  - Acute myocardial infarction [Recovered/Resolved]
